FAERS Safety Report 9870329 (Version 1)
Quarter: 2014Q1

REPORT INFORMATION
  Report Type: Spontaneous
  Country: US (occurrence: None)
  Receive Date: 20140204
  Receipt Date: 20140204
  Transmission Date: 20141002
  Serious: Yes (Other)
  Sender: FDA-Public Use
  Company Number: None

PATIENT
  Age: 30 Year
  Sex: Female
  Weight: 56.7 kg

DRUGS (1)
  1. RABEPRAZOLE [Suspect]
     Indication: GASTROOESOPHAGEAL REFLUX DISEASE
     Dosage: DOSE OR AMOUNT = 90?FREQUENCY = ONCE DAILY?ROUTE = TAKE ONE TABLET DAILY
     Dates: start: 20131205, end: 20140130

REACTIONS (4)
  - Pruritus [None]
  - Urticaria [None]
  - Swelling [None]
  - Product substitution issue [None]
